FAERS Safety Report 5453444-3 (Version None)
Quarter: 2007Q3

REPORT INFORMATION
  Report Type: 
  Country: None (occurrence: None)
  Receive Date: 20070913
  Receipt Date: 20070808
  Transmission Date: 20080115
  Serious: Yes (Hospitalization)
  Sender: FDA-Public Use
  Company Number: 07-ADE-SU-0012-ACT

PATIENT
  Sex: Female
  Weight: 4.9896 kg

DRUGS (2)
  1. H P ACTHAR [Suspect]
     Indication: INFANTILE SPASMS
     Dosage: 40U IM QD
     Route: 030
     Dates: start: 20070709, end: 20070804
  2. VIGABATRIN [Concomitant]

REACTIONS (5)
  - COLD SWEAT [None]
  - COMPLEX PARTIAL SEIZURES [None]
  - CONDITION AGGRAVATED [None]
  - CONVULSION [None]
  - IRRITABILITY [None]
